FAERS Safety Report 6026287-X (Version None)
Quarter: 2008Q4

REPORT INFORMATION
  Report Type: 
  Country: None (occurrence: None)
  Receive Date: 20081230
  Receipt Date: 20081216
  Transmission Date: 20090506
  Serious: Yes (Other)
  Sender: FDA-Public Use
  Company Number: S08-FRA-01341-01

PATIENT
  Age: 80 Year
  Sex: Female

DRUGS (6)
  1. CITALOPRAM HYDROBROMIDE [Suspect]
     Dosage: ORAL
     Route: 048
     Dates: start: 20070907, end: 20071115
  2. PROTELOS (STRONTIUM RANELATE) [Suspect]
     Dosage: ORAL
     Route: 048
     Dates: start: 20070807, end: 20071213
  3. XANAX (ALPRAZOLAM) (ALPRAZOLAM) [Concomitant]
  4. VASTAREL [Concomitant]
  5. DAFLON [Concomitant]
  6. STEROGYL [Concomitant]

REACTIONS (1)
  - APLASIA PURE RED CELL [None]
